FAERS Safety Report 7237498-X (Version None)
Quarter: 2011Q1

REPORT INFORMATION
  Report Type: 
  Country: None (occurrence: None)
  Receive Date: 20110121
  Receipt Date: 20110110
  Transmission Date: 20110831
  Serious: Yes (Hospitalization, Other)
  Sender: FDA-Public Use
  Company Number: AT-CELGENEUS-009-50794-10011358

PATIENT
  Age: 1 Year
  Sex: Male
  Weight: 10.3 kg

DRUGS (4)
  1. VIDAZA [Suspect]
     Route: 050
     Dates: start: 20091113, end: 20091117
  2. VIDAZA [Suspect]
     Route: 050
     Dates: start: 20091221, end: 20091225
  3. EUSAPRIM [Concomitant]
     Indication: PROPHYLAXIS
     Route: 065
     Dates: start: 20091207
  4. ONDANSETRON [Concomitant]
     Route: 065
     Dates: start: 20091113

REACTIONS (2)
  - CELLULITIS [None]
  - GASTROENTERITIS NOROVIRUS [None]
